FAERS Safety Report 13671048 (Version 1)
Quarter: 2017Q2

REPORT INFORMATION
  Report Type: Spontaneous
  Country: US (occurrence: US)
  Receive Date: 20170620
  Receipt Date: 20170620
  Transmission Date: 20170830
  Serious: No
  Sender: FDA-Public Use
  Company Number: US-ROCHE-1303247

PATIENT
  Sex: Female

DRUGS (3)
  1. XELODA [Suspect]
     Active Substance: CAPECITABINE
     Indication: BREAST CANCER
     Dosage: 7 DAYS ON AND 7 DAYS OFF
     Route: 048
     Dates: start: 20130108
  2. XELODA [Suspect]
     Active Substance: CAPECITABINE
     Indication: SOFT TISSUE SARCOMA
     Dosage: FOR 7 DAYS ON, 7 OFF
     Route: 048
     Dates: start: 20110307
  3. XELODA [Suspect]
     Active Substance: CAPECITABINE
     Route: 048
     Dates: start: 20130330

REACTIONS (6)
  - Palmar-plantar erythrodysaesthesia syndrome [Unknown]
  - Skin exfoliation [Unknown]
  - Insomnia [Unknown]
  - Viral upper respiratory tract infection [Unknown]
  - Dry skin [Unknown]
  - Amnesia [Unknown]
